FAERS Safety Report 6820859-8 (Version None)
Quarter: 2010Q3

REPORT INFORMATION
  Report Type: 
  Country: None (occurrence: None)
  Receive Date: 20100707
  Receipt Date: 20070627
  Transmission Date: 20110219
  Serious: No
  Sender: FDA-Public Use
  Company Number: US-PFIZER INC-2007053406

PATIENT
  Sex: Female
  Weight: 77.272 kg

DRUGS (3)
  1. ZOLOFT [Suspect]
     Indication: DEPRESSION
     Dates: start: 20010101, end: 20070607
  2. SERTRALINE HCL [Suspect]
     Indication: DEPRESSION
     Dates: start: 20070608
  3. VITAMINS [Concomitant]

REACTIONS (2)
  - FATIGUE [None]
  - IRRITABILITY [None]
